FAERS Safety Report 7843974 (Version 4)
Quarter: 2014Q1

REPORT INFORMATION
  Report Type: Spontaneous
  Country: US (occurrence: US)
  Receive Date: 20110307
  Receipt Date: 20140325
  Transmission Date: 20141002
  Serious: Yes (Other)
  Sender: FDA-Public Use
  Company Number: US-ALEXION-A201100266

PATIENT
  Age: 80 Year
  Sex: Female
  Weight: 83 kg

DRUGS (13)
  1. SOLIRIS 300MG [Suspect]
     Indication: PAROXYSMAL NOCTURNAL HAEMOGLOBINURIA
     Dosage: 600 MG, QW
     Route: 042
     Dates: start: 20101108, end: 201011
  2. SOLIRIS 300MG [Suspect]
     Dosage: 900 MG, Q2W
     Route: 042
     Dates: start: 201012
  3. LANTUS [Concomitant]
     Indication: DIABETES MELLITUS
     Dosage: 50 UG, QD
     Route: 058
  4. LOVENOX                            /00889602/ [Concomitant]
     Indication: THROMBOSIS PROPHYLAXIS
     Dosage: UNK, BID
     Route: 058
  5. VASOTEC                            /00574902/ [Concomitant]
     Dosage: 20 MG, BID
     Route: 048
  6. GLUCOPHAGE                         /00082701/ [Concomitant]
     Dosage: 500 MG, BID
     Route: 048
  7. ZOCOR [Concomitant]
     Indication: HYPERLIPIDAEMIA
     Dosage: 40 MG, QD
     Route: 048
  8. MAXZIDE [Concomitant]
     Dosage: 37.5/25 MG, QD
     Route: 048
  9. ATENOLOL [Concomitant]
     Indication: HYPERTENSION
     Dosage: 25 MG, BID
     Route: 048
  10. FOLIC ACID [Concomitant]
     Dosage: 1 MG, BID
  11. PRILOSEC [Concomitant]
     Dosage: 20 MG, QD
  12. LEXAPRO [Concomitant]
     Dosage: 10 MG, QD
  13. KEPPRA [Concomitant]
     Indication: PROPHYLAXIS
     Dosage: 750 MG, BID

REACTIONS (6)
  - Non-Hodgkin^s lymphoma [Not Recovered/Not Resolved]
  - Immune thrombocytopenic purpura [Not Recovered/Not Resolved]
  - Convulsion [Unknown]
  - Platelet transfusion [Not Recovered/Not Resolved]
  - Transfusion [Not Recovered/Not Resolved]
  - Diarrhoea [Unknown]
